FAERS Safety Report 7595829 (Version 4)
Quarter: 2014Q1

REPORT INFORMATION
  Report Type: Spontaneous
  Country: US (occurrence: US)
  Receive Date: 20100920
  Receipt Date: 20140212
  Transmission Date: 20141002
  Serious: Yes (Other)
  Sender: FDA-Public Use
  Company Number: US-ASTRAZENECA-2010SE05449

PATIENT
  Age: 47 Year
  Sex: Female
  Weight: 113.4 kg

DRUGS (12)
  1. SEROQUEL XR [Suspect]
     Indication: BIPOLAR DISORDER
     Route: 048
     Dates: start: 2007
  2. SEROQUEL XR [Suspect]
     Indication: BIPOLAR DISORDER
     Dosage: CUTTING PILLS IN HALF
     Route: 048
  3. SEROQUEL XR [Suspect]
     Indication: BIPOLAR DISORDER
     Dosage: TAKING LESS THAN RECOMMENDED DAILY DOSE
     Route: 048
  4. NARCO [Concomitant]
     Indication: BACK PAIN
     Dosage: 5-325 MG
  5. SOMA [Concomitant]
     Indication: BACK PAIN
  6. LIDODERM [Concomitant]
     Indication: BACK PAIN
  7. ROBAXIN [Concomitant]
  8. LORTAB [Concomitant]
     Dosage: 7.45
  9. LAVAQUIL [Concomitant]
  10. TAMZAPAM [Concomitant]
  11. DOCASATE SODIUM [Concomitant]
  12. ZOLOFT [Concomitant]
     Dosage: UNKNOWN

REACTIONS (15)
  - Deafness unilateral [Unknown]
  - Back injury [Unknown]
  - Weight decreased [Unknown]
  - Insomnia [Unknown]
  - Tachyphrenia [Unknown]
  - Anxiety [Unknown]
  - Headache [Unknown]
  - Nervousness [Unknown]
  - Hypoacusis [Unknown]
  - Accident at work [Unknown]
  - Palpitations [Unknown]
  - Psychomotor hyperactivity [Unknown]
  - Drug dose omission [Not Recovered/Not Resolved]
  - Off label use [Unknown]
  - Intentional drug misuse [Unknown]
